FAERS Safety Report 7992857-2 (Version None)
Quarter: 2011Q4

REPORT INFORMATION
  Report Type: 
  Country: None (occurrence: None)
  Receive Date: 20111219
  Receipt Date: 20101103
  Transmission Date: 20120403
  Serious: No
  Sender: FDA-Public Use
  Company Number: US-ASTRAZENECA-2010SE52163

PATIENT
  Age: 74 Year
  Sex: Male

DRUGS (4)
  1. ASPIRIN [Concomitant]
  2. COUMADIN [Concomitant]
  3. AMLODIPINE [Concomitant]
  4. CRESTOR [Suspect]
     Route: 048

REACTIONS (3)
  - BLOOD CREATININE INCREASED [None]
  - CENTRAL OBESITY [None]
  - DIAGNOSTIC PROCEDURE [None]
